FAERS Safety Report 11878731 (Version 1)
Quarter: 2015Q4

REPORT INFORMATION
  Report Type: Spontaneous
  Country: GB (occurrence: GB)
  Receive Date: 20151230
  Receipt Date: 20151230
  Transmission Date: 20160305
  Serious: Yes (Other)
  Sender: FDA-Public Use
  Company Number: GB-PFIZER INC-2015461295

PATIENT
  Age: 29 Year

DRUGS (1)
  1. VORICONAZOLE. [Suspect]
     Active Substance: VORICONAZOLE
     Indication: ANTIFUNGAL TREATMENT
     Dosage: UNK

REACTIONS (4)
  - Pyrexia [Unknown]
  - Haemoptysis [Unknown]
  - Lip blister [Unknown]
  - Malaise [Unknown]
